FAERS Safety Report 6974559-4 (Version None)
Quarter: 2010Q3

REPORT INFORMATION
  Report Type: 
  Country: None (occurrence: None)
  Receive Date: 20100909
  Receipt Date: 20100909
  Transmission Date: 20110219
  Serious: Yes (Hospitalization)
  Sender: FDA-Public Use
  Company Number: None

PATIENT
  Age: 7 Year
  Sex: Male
  Weight: 25.8 kg

DRUGS (2)
  1. LEVETIRACETAM [Suspect]
     Indication: CONVULSION
     Dosage: 150 MG BID PO
     Route: 048
     Dates: start: 20100830, end: 20100831
  2. LEVETIRACETAM [Suspect]
     Indication: CONVULSION
     Dosage: 300 MG ONCE PO
     Route: 048
     Dates: start: 20100830, end: 20100830

REACTIONS (6)
  - CONVULSION [None]
  - DEPRESSED LEVEL OF CONSCIOUSNESS [None]
  - HEAD INJURY [None]
  - HOMICIDAL IDEATION [None]
  - SUICIDAL IDEATION [None]
  - VERBAL ABUSE [None]
